FAERS Safety Report 21252055 (Version 5)
Quarter: 2022Q4

REPORT INFORMATION
  Report Type: Report from Study
  Country: US (occurrence: US)
  Receive Date: 20220825
  Receipt Date: 20221223
  Transmission Date: 20230112
  Serious: No
  Sender: FDA-Public Use
  Company Number: US-NOVARTISTESTPH-NVSC2022US189707

PATIENT
  Sex: Female

DRUGS (2)
  1. GLATOPA [Suspect]
     Active Substance: GLATIRAMER ACETATE
     Indication: Multiple sclerosis
     Dosage: 40 MG, QW3 (3 TIMES A WEEK)
     Route: 058
  2. GLATOPA [Suspect]
     Active Substance: GLATIRAMER ACETATE
     Dosage: 40 MG, Q48H
     Route: 058
     Dates: start: 20220819

REACTIONS (4)
  - Injection site erosion [Unknown]
  - Injection site haemorrhage [Recovered/Resolved]
  - Injection site erythema [Unknown]
  - Injection site pain [Unknown]
